FAERS Safety Report 24811090 (Version 1)
Quarter: 2025Q1

REPORT INFORMATION
  Report Type: Spontaneous
  Country: US (occurrence: None)
  Receive Date: 20250104
  Receipt Date: 20250104
  Transmission Date: 20250408
  Serious: Yes (Hospitalization, Other)
  Sender: FDA-CTU
  Company Number: None

PATIENT
  Age: 70 Year
  Sex: Male
  Weight: 81 kg

DRUGS (4)
  1. QUETIAPINE [Suspect]
     Active Substance: QUETIAPINE
     Indication: Sleep disorder
     Dosage: OTHER QUANTITY : 1 CAPSULE(S);?FREQUENCY : AT BEDTIME;?
     Route: 048
     Dates: start: 20241007, end: 20241120
  2. LUNESTA [Concomitant]
     Active Substance: ESZOPICLONE
  3. HYDROCODONE [Concomitant]
     Active Substance: HYDROCODONE
  4. TESTOSTERONE [Concomitant]
     Active Substance: TESTOSTERONE

REACTIONS (3)
  - Deep vein thrombosis [None]
  - Pulmonary embolism [None]
  - Gait inability [None]

NARRATIVE: CASE EVENT DATE: 20241120
